FAERS Safety Report 7053933-4 (Version None)
Quarter: 2010Q4

REPORT INFORMATION
  Report Type: 
  Country: None (occurrence: None)
  Receive Date: 20101013
  Receipt Date: 20100930
  Transmission Date: 20110411
  Serious: Yes (Other)
  Sender: FDA-Public Use
  Company Number: 2010SP053017

PATIENT
  Sex: Female

DRUGS (2)
  1. RIBAVIRIN [Suspect]
     Indication: HEPATITIS C
  2. PEGYLATED INTERFERON ALFA 2A (NO PREF. NAME) [Suspect]
     Indication: HEPATITIS C
     Dosage: 180 MCG; QW

REACTIONS (3)
  - ANAEMIA [None]
  - HAEMATOMA [None]
  - THROMBOCYTOPENIA [None]
